FAERS Safety Report 7548606-5 (Version None)
Quarter: 2011Q2

REPORT INFORMATION
  Report Type: 
  Country: None (occurrence: None)
  Receive Date: 20110615
  Receipt Date: 20110601
  Transmission Date: 20111010
  Serious: Yes (Hospitalization)
  Sender: FDA-Public Use
  Company Number: FR-SANOFI-AVENTIS-2011SA035650

PATIENT
  Age: 84 Year
  Sex: Female

DRUGS (11)
  1. ZOLPIDEM [Concomitant]
     Route: 048
  2. ATACAND [Concomitant]
     Route: 048
  3. LERCANIDIPINE [Concomitant]
     Route: 048
  4. PLAVIX [Concomitant]
     Route: 048
  5. IMOVANE [Concomitant]
     Route: 048
  6. CORDARONE [Concomitant]
     Route: 048
     Dates: start: 20090101, end: 20101001
  7. EURELIX [Concomitant]
     Route: 048
  8. ESOMEPRAZOLE MAGNESIUM [Concomitant]
     Route: 048
  9. ROSUVASTATIN [Concomitant]
     Route: 048
  10. CORDARONE [Concomitant]
     Route: 048
     Dates: start: 20110122
  11. MULTAQ [Suspect]
     Route: 048
     Dates: start: 20101001, end: 20110101

REACTIONS (2)
  - IDIOPATHIC THROMBOCYTOPENIC PURPURA [None]
  - UNDERDOSE [None]
